FAERS Safety Report 6933854-5 (Version None)
Quarter: 2010Q3

REPORT INFORMATION
  Report Type: 
  Country: None (occurrence: None)
  Receive Date: 20100820
  Receipt Date: 20100812
  Transmission Date: 20110219
  Serious: No
  Sender: FDA-Public Use
  Company Number: US-US-EMD SERONO, INC.-7003259

PATIENT
  Sex: Male
  Weight: 93 kg

DRUGS (1)
  1. REBIF [Suspect]
     Indication: MULTIPLE SCLEROSIS
     Route: 058
     Dates: start: 20080608

REACTIONS (4)
  - EXOSTOSIS [None]
  - INJECTION SITE ERYTHEMA [None]
  - MUSCLE RUPTURE [None]
  - PERIARTHRITIS [None]
